FAERS Safety Report 17250412 (Version 2)
Quarter: 2020Q1

REPORT INFORMATION
  Report Type: Spontaneous
  Country: US (occurrence: US)
  Receive Date: 20200109
  Receipt Date: 20200204
  Transmission Date: 20200409
  Serious: No
  Sender: FDA-Public Use
  Company Number: US-ASTRAZENECA-2019SF80609

PATIENT
  Sex: Male

DRUGS (1)
  1. BEVESPI AEROSPHERE [Suspect]
     Active Substance: FORMOTEROL FUMARATE\GLYCOPYRROLATE
     Dosage: INHALATION TWICE A DAY, 2 INHALATIONS EACH TIME, 9MCG/4.8MCG
     Route: 055

REACTIONS (3)
  - Dyspnoea [Unknown]
  - Device issue [Unknown]
  - Drug ineffective [Unknown]
